FAERS Safety Report 12060145 (Version 3)
Quarter: 2016Q1

REPORT INFORMATION
  Report Type: Spontaneous
  Country: US (occurrence: US)
  Receive Date: 20160210
  Receipt Date: 20160329
  Transmission Date: 20160526
  Serious: Yes (Hospitalization)
  Sender: FDA-Public Use
  Company Number: US-BEH-2016058452

PATIENT
  Age: 74 Year
  Sex: Female
  Weight: 55 kg

DRUGS (28)
  1. METOPROLOL. [Concomitant]
     Active Substance: METOPROLOL
  2. VITAMIN D3 [Concomitant]
     Active Substance: CHOLECALCIFEROL
  3. AZITHROMYCIN ANHYDROUS. [Concomitant]
     Active Substance: AZITHROMYCIN ANHYDROUS
  4. OMEGA [Concomitant]
     Active Substance: CONVALLARIA MAJALIS\CRATAEGUS LAEVIGATA LEAF\PROXYPHYLLINE
  5. OXYGEN. [Concomitant]
     Active Substance: OXYGEN
  6. LMX [Concomitant]
     Active Substance: LIDOCAINE
  7. ADVAIR HFA [Concomitant]
     Active Substance: FLUTICASONE PROPIONATE\SALMETEROL XINAFOATE
  8. NEXIUM [Concomitant]
     Active Substance: ESOMEPRAZOLE MAGNESIUM
  9. ZEMAIRA [Suspect]
     Active Substance: .ALPHA.1-PROTEINASE INHIBITOR HUMAN
     Indication: ALPHA-1 ANTI-TRYPSIN DEFICIENCY
     Route: 042
  10. MULTIVITAMINS [Concomitant]
     Active Substance: VITAMINS
  11. METHYLPREDNISOLONE. [Concomitant]
     Active Substance: METHYLPREDNISOLONE
  12. ACIDOPHILUS [Concomitant]
     Active Substance: LACTOBACILLUS ACIDOPHILUS
  13. EPINEPHRINE. [Concomitant]
     Active Substance: EPINEPHRINE
  14. ASPIRIN. [Concomitant]
     Active Substance: ASPIRIN
  15. KETOROLAC [Concomitant]
     Active Substance: KETOROLAC\KETOROLAC TROMETHAMINE
  16. ZITHROMAX [Concomitant]
     Active Substance: AZITHROMYCIN DIHYDRATE
  17. NORMAL SALINE [Concomitant]
     Active Substance: SODIUM CHLORIDE
  18. PROTONIX [Concomitant]
     Active Substance: PANTOPRAZOLE SODIUM
  19. ATROPINE. [Concomitant]
     Active Substance: ATROPINE
  20. CIPROFLOXACIN. [Concomitant]
     Active Substance: CIPROFLOXACIN
  21. PREDNISONE. [Concomitant]
     Active Substance: PREDNISONE
  22. PROAIR HFA [Concomitant]
     Active Substance: ALBUTEROL SULFATE
  23. DIPHENHYDRAMINE. [Concomitant]
     Active Substance: DIPHENHYDRAMINE
  24. LORAZEPAM. [Concomitant]
     Active Substance: LORAZEPAM
  25. OMEPRAZOLE. [Concomitant]
     Active Substance: OMEPRAZOLE
  26. UNISOM SLEEPTABS [Concomitant]
     Active Substance: DOXYLAMINE SUCCINATE
  27. CALCIUM [Concomitant]
     Active Substance: CALCIUM
  28. PREDNISOLONE AC [Concomitant]
     Active Substance: PREDNISOLONE ACETATE

REACTIONS (6)
  - Blood pressure increased [Recovered/Resolved]
  - Dyspnoea [Recovered/Resolved]
  - Pulmonary mass [Recovered/Resolved]
  - Chronic obstructive pulmonary disease [Unknown]
  - Bronchitis [Recovered/Resolved]
  - Atrial fibrillation [Recovered/Resolved]

NARRATIVE: CASE EVENT DATE: 20160121
